FAERS Safety Report 18823251 (Version 1)
Quarter: 2021Q1

REPORT INFORMATION
  Report Type: Report from Study
  Country: None (occurrence: DE)
  Receive Date: 20210201
  Receipt Date: 20210201
  Transmission Date: 20210419
  Serious: Yes (Hospitalization, Other)
  Sender: FDA-Public Use
  Company Number: DE-ABBVIE-21K-062-3753365-00

PATIENT
  Age: 71 Year
  Sex: Male
  Weight: 111 kg

DRUGS (10)
  1. ALLOPURINOL. [Concomitant]
     Active Substance: ALLOPURINOL
     Indication: PRODUCT USED FOR UNKNOWN INDICATION
     Dosage: DAILY ONCE, AFTER MEAL
     Route: 048
  2. METOPROLOL SUCCINATE. [Concomitant]
     Active Substance: METOPROLOL SUCCINATE
     Indication: PRODUCT USED FOR UNKNOWN INDICATION
     Route: 048
  3. RAMIPRIL/HYDROCHLOROTHIAZIDE [Concomitant]
     Active Substance: HYDROCHLOROTHIAZIDE\RAMIPRIL
     Indication: PRODUCT USED FOR UNKNOWN INDICATION
     Dosage: 5/25 MG
     Route: 048
  4. RAMIPRIL. [Concomitant]
     Active Substance: RAMIPRIL
     Indication: PRODUCT USED FOR UNKNOWN INDICATION
     Route: 048
  5. XARELTO [Concomitant]
     Active Substance: RIVAROXABAN
     Indication: PRODUCT USED FOR UNKNOWN INDICATION
     Route: 048
  6. LEVEMIR [Concomitant]
     Active Substance: INSULIN DETEMIR
     Indication: PRODUCT USED FOR UNKNOWN INDICATION
     Route: 058
  7. LERCANIDIPINE [Concomitant]
     Active Substance: LERCANIDIPINE
     Indication: PRODUCT USED FOR UNKNOWN INDICATION
     Route: 048
  8. INSULIN RAPID [Concomitant]
     Active Substance: INSULIN NOS
     Indication: PRODUCT USED FOR UNKNOWN INDICATION
     Dosage: ACCORDING TO THE NUMBERS
     Route: 058
  9. SKYRIZI [Suspect]
     Active Substance: RISANKIZUMAB-RZAA
     Indication: PSORIASIS
     Route: 058
     Dates: start: 20200708
  10. METAMIZOL SODIUM [Concomitant]
     Active Substance: METAMIZOL SODIUM
     Indication: PRODUCT USED FOR UNKNOWN INDICATION
     Dosage: AS REQUIRED
     Route: 048

REACTIONS (25)
  - Dehydration [Recovered/Resolved]
  - Abdominal pain [Unknown]
  - Hypoglycaemia [Recovered/Resolved]
  - Blood creatinine increased [Unknown]
  - C-reactive protein increased [Unknown]
  - Prerenal failure [Unknown]
  - Diabetic nephropathy [Unknown]
  - Blood thyroid stimulating hormone increased [Unknown]
  - Renal impairment [Unknown]
  - Diarrhoea [Unknown]
  - Syncope [Unknown]
  - Blood lactate dehydrogenase increased [Unknown]
  - Infection [Unknown]
  - Loss of consciousness [Unknown]
  - Splenomegaly [Unknown]
  - White blood cell count increased [Unknown]
  - Blood urea increased [Unknown]
  - Blood uric acid increased [Unknown]
  - Hepatic steatosis [Unknown]
  - Red blood cell count decreased [Unknown]
  - Gastroenteritis viral [Recovered/Resolved]
  - Gastrointestinal disorder [Unknown]
  - Chronic kidney disease [Unknown]
  - Vomiting [Unknown]
  - Cholelithiasis [Unknown]

NARRATIVE: CASE EVENT DATE: 20201227
